FAERS Safety Report 8043992-4 (Version None)
Quarter: 2012Q1

REPORT INFORMATION
  Report Type: 
  Country: None (occurrence: None)
  Receive Date: 20120113
  Receipt Date: 20120105
  Transmission Date: 20120608
  Serious: Yes (Hospitalization)
  Sender: FDA-Public Use
  Company Number: FR-SP-2012-00078

PATIENT
  Sex: Male

DRUGS (2)
  1. OMIX (TAMSULOSINE CHLORHYDRATE) [Concomitant]
  2. IMMUCYST [Suspect]
     Indication: BLADDER CANCER
     Route: 043
     Dates: start: 20101005, end: 20101005

REACTIONS (8)
  - BOVINE TUBERCULOSIS [None]
  - DIARRHOEA [None]
  - CELL DEATH [None]
  - GENERAL PHYSICAL HEALTH DETERIORATION [None]
  - RENAL FAILURE ACUTE [None]
  - PYREXIA [None]
  - CHILLS [None]
  - CHOLESTASIS [None]
